FAERS Safety Report 5321955-7 (Version None)
Quarter: 2007Q2

REPORT INFORMATION
  Report Type: 
  Country: None (occurrence: None)
  Receive Date: 20070511
  Receipt Date: 20070503
  Transmission Date: 20071010
  Serious: Yes (Hospitalization)
  Sender: FDA-Public Use
  Company Number: PHEH2007US05998

PATIENT
  Age: 71 Year
  Sex: Female

DRUGS (5)
  1. ZELNORM [Suspect]
     Indication: IRRITABLE BOWEL SYNDROME
     Route: 048
     Dates: start: 20061201, end: 20070411
  2. ASPIRIN [Concomitant]
     Dosage: 81 MG, QD
  3. ZOCOR [Concomitant]
     Dosage: UNK, QD
  4. LOTREL [Concomitant]
     Dosage: 10 /20 MG, QD
  5. LOTREL [Concomitant]
     Dosage: 5 / 10 MG, QD

REACTIONS (8)
  - CHEST PAIN [None]
  - DIZZINESS [None]
  - DYSPNOEA [None]
  - GAIT DISTURBANCE [None]
  - HEART RATE INCREASED [None]
  - MENTAL IMPAIRMENT [None]
  - NERVOUS SYSTEM DISORDER [None]
  - SPEECH DISORDER [None]
